FAERS Safety Report 22601274 (Version 1)
Quarter: 2023Q2

REPORT INFORMATION
  Report Type: Spontaneous
  Country: US (occurrence: US)
  Receive Date: 20230614
  Receipt Date: 20230614
  Transmission Date: 20230722
  Serious: No
  Sender: FDA-Public Use
  Company Number: US-RIGEL PHARMACEUTICALS, INC.-2023FOS000097

PATIENT
  Age: 77 Year
  Sex: Female

DRUGS (1)
  1. TAVALISSE [Suspect]
     Active Substance: FOSTAMATINIB
     Indication: Immune thrombocytopenia
     Dosage: 100 MG, BID
     Route: 048
     Dates: start: 20221005

REACTIONS (5)
  - Fall [Unknown]
  - Pain [Unknown]
  - Platelet count decreased [Unknown]
  - Platelet count [Unknown]
  - Hypertension [Unknown]

NARRATIVE: CASE EVENT DATE: 20230125
